FAERS Safety Report 5827706-1 (Version None)
Quarter: 2008Q2

REPORT INFORMATION
  Report Type: 
  Country: None (occurrence: None)
  Receive Date: 20080601
  Receipt Date: 20080209
  Transmission Date: 20081010
  Serious: No
  Sender: FDA-Public Use
  Company Number: US200802002197

PATIENT
  Age: 59 Year
  Sex: Female
  Weight: 144.2 kg

DRUGS (14)
  1. BYETTA [Suspect]
     Indication: TYPE 2 DIABETES MELLITUS
     Dosage: 5 UG, 2/D, SUBCUTANEOUS; 10 UG, 2/D, SUBCUTANEOUS
     Route: 058
     Dates: start: 20060101, end: 20060101
  2. BYETTA [Suspect]
     Indication: TYPE 2 DIABETES MELLITUS
     Dosage: 5 UG, 2/D, SUBCUTANEOUS; 10 UG, 2/D, SUBCUTANEOUS
     Route: 058
     Dates: start: 20060101
  3. EXENATIDE 10MCG PEN, DISPOSABLE DEVICE (EXENATIDE PEN (10MCG)) PEN, DI [Concomitant]
  4. LEVOXYL [Concomitant]
  5. ATENOLOL [Concomitant]
  6. IMDUR [Concomitant]
  7. ALLOPURINOL [Concomitant]
  8. ZETIA [Concomitant]
  9. TRICOR [Concomitant]
  10. PRAVACHOL [Concomitant]
  11. MULTIVITAMIN [Concomitant]
  12. FISH OIL (FISH OIL) [Concomitant]
  13. CO-Q10 (UBIDECARENONE) [Concomitant]
  14. FOLIC ACID [Concomitant]

REACTIONS (5)
  - CHEST PAIN [None]
  - DIARRHOEA [None]
  - DIZZINESS [None]
  - PYREXIA [None]
  - VOMITING [None]
